FAERS Safety Report 5364777-3 (Version None)
Quarter: 2007Q2

REPORT INFORMATION
  Report Type: 
  Country: None (occurrence: None)
  Receive Date: 20070621
  Receipt Date: 20070611
  Transmission Date: 20071010
  Serious: Yes (Life-Threatening, Hospitalization)
  Sender: FDA-Public Use
  Company Number: US-JNJFOC-20070602965

PATIENT
  Sex: Male
  Weight: 9.6 kg

DRUGS (7)
  1. REMICADE [Suspect]
     Route: 042
  2. REMICADE [Suspect]
     Route: 042
  3. REMICADE [Suspect]
     Indication: GRAFT VERSUS HOST DISEASE
     Route: 042
  4. TACROLIMUS [Suspect]
     Indication: DRUG USE FOR UNKNOWN INDICATION
  5. MYCOPHENOLATE MOFETIL [Concomitant]
  6. BECLOMETHASONE DIPROPIONATE [Concomitant]
     Route: 048
  7. TPN [Concomitant]

REACTIONS (2)
  - RESPIRATORY FAILURE [None]
  - THROMBOTIC MICROANGIOPATHY [None]
